FAERS Safety Report 6296982-6 (Version None)
Quarter: 2009Q3

REPORT INFORMATION
  Report Type: 
  Country: None (occurrence: None)
  Receive Date: 20090803
  Receipt Date: 20090803
  Transmission Date: 20100115
  Serious: Yes (Hospitalization)
  Sender: FDA-Public Use
  Company Number: 0716091-294-MF

PATIENT
  Age: 38 Year
  Sex: Male

DRUGS (1)
  1. OXCARBAZEPINE [Suspect]
     Indication: DEPRESSION
     Dosage: ORAL 047
     Route: 048

REACTIONS (5)
  - CAROTID ARTERY OCCLUSION [None]
  - RASH [None]
  - VERTIGO [None]
  - VISION BLURRED [None]
  - WEIGHT INCREASED [None]
